FAERS Safety Report 22196238 (Version 2)
Quarter: 2023Q4

REPORT INFORMATION
  Report Type: Spontaneous
  Country: KR (occurrence: KR)
  Receive Date: 20230411
  Receipt Date: 20231116
  Transmission Date: 20240110
  Serious: Yes (Other)
  Sender: FDA-Public Use
  Company Number: KR-BAYER-2023A045268

PATIENT
  Sex: Male

DRUGS (1)
  1. EYLEA [Suspect]
     Active Substance: AFLIBERCEPT
     Indication: Product used for unknown indication
     Dosage: UNK, SOLUTION FOR INJECTION, 40MG/ML
     Dates: start: 20230322, end: 20230323

REACTIONS (2)
  - Retinal vasculitis [Recovering/Resolving]
  - Vitritis [Recovering/Resolving]

NARRATIVE: CASE EVENT DATE: 20230323
